FAERS Safety Report 23380180 (Version 1)
Quarter: 2024Q1

REPORT INFORMATION
  Report Type: Spontaneous
  Country: US (occurrence: US)
  Receive Date: 20240109
  Receipt Date: 20240109
  Transmission Date: 20240410
  Serious: No
  Sender: FDA-Public Use
  Company Number: US-AUROBINDO-AUR-APL-2023-040431

PATIENT
  Age: 27 Year
  Sex: Male

DRUGS (1)
  1. CLOZAPINE [Suspect]
     Active Substance: CLOZAPINE
     Indication: Product used for unknown indication
     Dosage: UNK, TWO TIMES A DAY,(200 MG ORAL TABLET IN THE MORNING AND 100 MG ORAL TABLET IN THE EVENING)
     Route: 048

REACTIONS (1)
  - Neutrophilia [Unknown]

NARRATIVE: CASE EVENT DATE: 20230521
